FAERS Safety Report 10149941 (Version 1)
Quarter: 2014Q2

REPORT INFORMATION
  Report Type: Spontaneous
  Country: NL (occurrence: NL)
  Receive Date: 20140502
  Receipt Date: 20140502
  Transmission Date: 20141212
  Serious: Yes (Other)
  Sender: FDA-Public Use
  Company Number: NL-WATSON-2014-08529

PATIENT
  Age: 67 Year
  Sex: Female

DRUGS (1)
  1. METRONIDAZOLE [Suspect]
     Indication: INFECTION PARASITIC
     Dosage: 750 MG, TID
     Route: 048
     Dates: start: 20140403

REACTIONS (3)
  - Initial insomnia [Unknown]
  - Depressed level of consciousness [Unknown]
  - Fatigue [Unknown]
